FAERS Safety Report 14986891 (Version 1)
Quarter: 2018Q2

REPORT INFORMATION
  Report Type: Report from Study
  Country: FR (occurrence: FR)
  Receive Date: 20180608
  Receipt Date: 20180608
  Transmission Date: 20180711
  Serious: Yes (Other)
  Sender: FDA-Public Use
  Company Number: FR-ACCORD-067992

PATIENT
  Age: 31 Year
  Sex: Female

DRUGS (3)
  1. TOCILIZUMAB. [Suspect]
     Active Substance: TOCILIZUMAB
     Indication: TAKAYASU^S ARTERITIS
  2. METHOTREXATE. [Suspect]
     Active Substance: METHOTREXATE
     Indication: TAKAYASU^S ARTERITIS
     Dates: start: 201702
  3. PREDNISONE. [Concomitant]
     Active Substance: PREDNISONE
     Indication: TAKAYASU^S ARTERITIS

REACTIONS (3)
  - Drug ineffective [Unknown]
  - Off label use [Unknown]
  - Hepatitis [Unknown]
